FAERS Safety Report 5885360-7 (Version None)
Quarter: 2008Q3

REPORT INFORMATION
  Report Type: 
  Country: None (occurrence: None)
  Receive Date: 20080912
  Receipt Date: 20080904
  Transmission Date: 20090109
  Serious: Yes (Hospitalization)
  Sender: FDA-Public Use
  Company Number: 2008BI021857

PATIENT
  Age: 38 Year
  Sex: Female

DRUGS (2)
  1. TYSABRI [Suspect]
     Indication: MULTIPLE SCLEROSIS
     Dosage: 300 MG;QM;IV
     Route: 042
     Dates: start: 20080718
  2. AVONEX [Concomitant]

REACTIONS (4)
  - CONDITION AGGRAVATED [None]
  - INFECTION [None]
  - MULTIPLE SCLEROSIS [None]
  - OPTIC NEURITIS [None]
